FAERS Safety Report 11208083 (Version 1)
Quarter: 2015Q2

REPORT INFORMATION
  Report Type: Spontaneous
  Country: US (occurrence: None)
  Receive Date: 20150619
  Receipt Date: 20150619
  Transmission Date: 20150821
  Serious: Yes (Other)
  Sender: FDA-Public Use
  Company Number: 2015SMT00123

PATIENT
  Age: 94 Year
  Sex: Female

DRUGS (11)
  1. LEVOTHYROXINE [Concomitant]
     Active Substance: LEVOTHYROXINE
  2. OXYCODONE [Concomitant]
     Active Substance: OXYCODONE
  3. COLLAGENASE SANTYL [Suspect]
     Active Substance: COLLAGENASE CLOSTRIDIUM HISTOLYTICUM
     Indication: WOUND
     Dates: start: 20150605, end: 20150608
  4. MULTIVITAMIN (DIETARY SUPPLEMENT) [Concomitant]
  5. CALCIUM PLUS VITAMIN D (DIETARY SUPPLEMENT) [Concomitant]
  6. TYLENOL [Concomitant]
     Active Substance: ACETAMINOPHEN
  7. TRAMADOL [Concomitant]
     Active Substance: TRAMADOL
  8. TYLENOL ARTHRITIS (ACETAMINOPHEN) [Concomitant]
  9. LANSOPRAZOLE. [Concomitant]
     Active Substance: LANSOPRAZOLE
  10. HYDROXYCHLOROQUINE [Concomitant]
     Active Substance: HYDROXYCHLOROQUINE
  11. PROBIOTIC (DIETARY SUPPLEMENT) [Concomitant]

REACTIONS (2)
  - Drug ineffective [None]
  - Arterial stent insertion [None]

NARRATIVE: CASE EVENT DATE: 20150605
